FAERS Safety Report 9483931 (Version 2)
Quarter: 2013Q3

REPORT INFORMATION
  Report Type: Spontaneous
  Country: CA (occurrence: CA)
  Receive Date: 20130828
  Receipt Date: 20130828
  Transmission Date: 20140515
  Serious: Yes (Hospitalization)
  Sender: FDA-Public Use
  Company Number: CA-AMGEN-KDL324204

PATIENT
  Age: 76 Year
  Sex: Female
  Weight: 61.3 kg

DRUGS (5)
  1. ENBREL [Suspect]
     Indication: RHEUMATOID ARTHRITIS
     Dosage: 50 MG, QWK
     Route: 058
     Dates: start: 20081108
  2. ENBREL [Suspect]
     Dosage: 50 MG, QWK
     Route: 058
     Dates: start: 20081108
  3. LEFLUNOMIDE [Concomitant]
     Dosage: UNK UNK, UNK
  4. PREDNISONE [Concomitant]
     Dosage: UNK UNK, UNK
  5. UNSPECIFIED ASTHMA MEDICATION [Concomitant]
     Dosage: UNK UNK, UNK
     Route: 048

REACTIONS (5)
  - Pericarditis [Unknown]
  - Pain in extremity [Unknown]
  - Dyspnoea [Unknown]
  - Dry mouth [Unknown]
  - Drug ineffective [Unknown]
